FAERS Safety Report 24551704 (Version 1)
Quarter: 2024Q4

REPORT INFORMATION
  Report Type: Spontaneous
  Country: GB (occurrence: GB)
  Receive Date: 20241026
  Receipt Date: 20241026
  Transmission Date: 20250115
  Serious: Yes (Other)
  Sender: AUROBINDO
  Company Number: GB-MHRA-MED-202410131337347730-RJGSF

PATIENT
  Age: 73 Year
  Sex: Male
  Weight: 78 kg

DRUGS (1)
  1. ATORVASTATIN [Suspect]
     Active Substance: ATORVASTATIN
     Indication: Coronary artery bypass
     Dosage: 80 MILLIGRAM, ONCE A DAY
     Route: 065
     Dates: start: 20230201, end: 20240930

REACTIONS (1)
  - Pulmonary congestion [Recovered/Resolved]

NARRATIVE: CASE EVENT DATE: 20240101
